FAERS Safety Report 10934708 (Version 1)
Quarter: 2015Q1

REPORT INFORMATION
  Report Type: Spontaneous
  Country: US (occurrence: US)
  Receive Date: 20150320
  Receipt Date: 20150320
  Transmission Date: 20150721
  Serious: No
  Sender: FDA-Public Use
  Company Number: US-ASTRAZENECA-2014SE23121

PATIENT
  Age: 79 Year
  Sex: Male
  Weight: 77.1 kg

DRUGS (4)
  1. PANCRELYPASE [Concomitant]
     Indication: PANCREATITIS
     Dosage: NR DAILY
  2. CAPRELSA [Suspect]
     Active Substance: VANDETANIB
     Indication: THYROID CANCER
     Route: 048
     Dates: start: 201310, end: 201403
  3. FENESTERIDE [Concomitant]
     Indication: URINARY TRACT DISORDER
     Dosage: NR DAILY
  4. NAC [Concomitant]
     Indication: LUNG DISORDER
     Dosage: NR DAILY

REACTIONS (6)
  - Skin wrinkling [Not Recovered/Not Resolved]
  - Rash pruritic [Not Recovered/Not Resolved]
  - Dry skin [Not Recovered/Not Resolved]
  - Diarrhoea [Recovered/Resolved]
  - Rash generalised [Not Recovered/Not Resolved]
  - Skin exfoliation [Not Recovered/Not Resolved]

NARRATIVE: CASE EVENT DATE: 201310
